FAERS Safety Report 14803466 (Version 1)
Quarter: 2018Q2

REPORT INFORMATION
  Report Type: Spontaneous
  Country: US (occurrence: US)
  Receive Date: 20180425
  Receipt Date: 20180425
  Transmission Date: 20180711
  Serious: No
  Sender: FDA-Public Use
  Company Number: US-009507513-1803USA013022

PATIENT
  Age: 20 Year
  Sex: Female

DRUGS (1)
  1. NEXPLANON [Suspect]
     Active Substance: ETONOGESTREL
     Indication: CONTRACEPTION
     Dosage: 68 MG, IMPLANT, ONCE
     Route: 059
     Dates: start: 20151112, end: 20170605

REACTIONS (1)
  - Mood swings [Unknown]

NARRATIVE: CASE EVENT DATE: 20170605
